FAERS Safety Report 24014368 (Version 1)
Quarter: 2024Q2

REPORT INFORMATION
  Report Type: Spontaneous
  Country: US (occurrence: US)
  Receive Date: 20240626
  Receipt Date: 20240626
  Transmission Date: 20240716
  Serious: Yes (Death, Other)
  Sender: FDA-Public Use
  Company Number: US-GLAXOSMITHKLINE-US2024078536

PATIENT

DRUGS (1)
  1. ANORO ELLIPTA [Suspect]
     Active Substance: UMECLIDINIUM BROMIDE\VILANTEROL TRIFENATATE
     Indication: Chronic obstructive pulmonary disease
     Dosage: UNK (ANORO ELLIPTA 62.525MCG INH 60)
     Dates: end: 20240531

REACTIONS (1)
  - Chronic obstructive pulmonary disease [Fatal]

NARRATIVE: CASE EVENT DATE: 20240531
